FAERS Safety Report 13903228 (Version 1)
Quarter: 2017Q3

REPORT INFORMATION
  Report Type: Other
  Country: CA (occurrence: CA)
  Receive Date: 20170824
  Receipt Date: 20170824
  Transmission Date: 20171127
  Serious: Yes (Other)
  Sender: FDA-Public Use
  Company Number: CA-APOTEX-2017AP016882

PATIENT
  Age: 66 Year
  Sex: Male
  Weight: 82 kg

DRUGS (1)
  1. APO-DICLOFENAC OPHTHALMIC [Suspect]
     Active Substance: DICLOFENAC
     Indication: EYE INFLAMMATION
     Dosage: 3 GTT, QD
     Route: 047

REACTIONS (3)
  - Ocular hypertension [Unknown]
  - Blindness [Unknown]
  - Visual impairment [Unknown]
